FAERS Safety Report 5739733-3 (Version None)
Quarter: 2008Q2

REPORT INFORMATION
  Report Type: 
  Country: None (occurrence: None)
  Receive Date: 20080512
  Receipt Date: 20080512
  Transmission Date: 20081010
  Serious: No
  Sender: FDA-Public Use
  Company Number: None

PATIENT
  Age: 56 Year
  Sex: Female
  Weight: 58.9676 kg

DRUGS (1)
  1. ZOMETA [Suspect]
     Indication: OSTEOPOROSIS
     Dosage: IV DRIP
     Route: 041
     Dates: start: 20080507, end: 20080507

REACTIONS (7)
  - ARTHRALGIA [None]
  - CHILLS [None]
  - HEADACHE [None]
  - IMPAIRED WORK ABILITY [None]
  - LETHARGY [None]
  - PAIN [None]
  - PYREXIA [None]
